FAERS Safety Report 24587345 (Version 1)
Quarter: 2024Q4

REPORT INFORMATION
  Report Type: Report from Study
  Country: US (occurrence: US)
  Receive Date: 20241107
  Receipt Date: 20241107
  Transmission Date: 20250114
  Serious: Yes (Other)
  Sender: CSL BEHRING
  Company Number: US-BEH-2024183203

PATIENT
  Age: 47 Year
  Sex: Female
  Weight: 110 kg

DRUGS (1)
  1. HIZENTRA [Suspect]
     Active Substance: HUMAN IMMUNOGLOBULIN G
     Dosage: 4 GRAM/ 20 ML VIAL, QOW
     Route: 065

REACTIONS (18)
  - Illness [Unknown]
  - Immunodeficiency common variable [Unknown]
  - Cough [Unknown]
  - Pyrexia [Unknown]
  - COVID-19 [Unknown]
  - Post-acute COVID-19 syndrome [Unknown]
  - Nausea [Unknown]
  - Nasal congestion [Unknown]
  - Headache [Unknown]
  - Dizziness [Unknown]
  - Acute sinusitis [Unknown]
  - Immunisation reaction [Unknown]
  - Migraine [Unknown]
  - Cough [Unknown]
  - Bronchitis [Unknown]
  - Rhinitis [Unknown]
  - Eustachian tube disorder [Unknown]
  - Headache [Unknown]
